FAERS Safety Report 9823931 (Version 2)
Quarter: 2014Q1

REPORT INFORMATION
  Report Type: Spontaneous
  Country: US (occurrence: US)
  Receive Date: 20140116
  Receipt Date: 20140116
  Transmission Date: 20141002
  Serious: Yes (Other)
  Sender: FDA-Public Use
  Company Number: US-GILEAD-2011-0037917

PATIENT
  Sex: Female

DRUGS (2)
  1. LETAIRIS [Suspect]
     Indication: PULMONARY HYPERTENSION
     Route: 048
     Dates: start: 20100622
  2. LETAIRIS [Suspect]
     Indication: SARCOIDOSIS

REACTIONS (3)
  - Drug ineffective [Unknown]
  - Wheezing [Unknown]
  - Dyspnoea [Unknown]
